FAERS Safety Report 5188915-0 (Version None)
Quarter: 2006Q4

REPORT INFORMATION
  Report Type: 
  Country: None (occurrence: None)
  Receive Date: 20061215
  Receipt Date: 20061204
  Transmission Date: 20070319
  Serious: Yes (Other)
  Sender: FDA-Public Use
  Company Number: 2005162364

PATIENT
  Age: 50 Year
  Sex: Female

DRUGS (3)
  1. NEURONTIN [Suspect]
     Indication: PAIN
  2. DILANTIN KAPSEAL [Suspect]
     Indication: CONVULSION
  3. PHENOBARBITAL TAB [Concomitant]

REACTIONS (14)
  - ACCIDENTAL OVERDOSE [None]
  - ADJUSTMENT DISORDER [None]
  - ANTICONVULSANT TOXICITY [None]
  - ANXIETY [None]
  - COORDINATION ABNORMAL [None]
  - DEPRESSED MOOD [None]
  - DISTURBANCE IN ATTENTION [None]
  - DRUG INEFFECTIVE [None]
  - DYSARTHRIA [None]
  - MEMORY IMPAIRMENT [None]
  - SLEEP DISORDER [None]
  - SUICIDAL IDEATION [None]
  - SUICIDE ATTEMPT [None]
  - WEIGHT DECREASED [None]
